FAERS Safety Report 7684231-3 (Version None)
Quarter: 2011Q3

REPORT INFORMATION
  Report Type: 
  Country: None (occurrence: None)
  Receive Date: 20110815
  Receipt Date: 20110811
  Transmission Date: 20111222
  Serious: Yes (Hospitalization, Disabling, Other)
  Sender: FDA-Public Use
  Company Number: US-MERCK-1010USA01774

PATIENT
  Age: 65 Year
  Sex: Female
  Weight: 80 kg

DRUGS (13)
  1. FOSAMAX [Suspect]
     Indication: OSTEOPENIA
     Route: 048
     Dates: start: 19961106, end: 20010901
  2. FOSAMAX [Suspect]
     Route: 048
     Dates: start: 20010629, end: 20060614
  3. VITAMINS (UNSPECIFIED) [Concomitant]
     Dosage: ^1 MULTIVITAMIN DAILY^
     Route: 048
     Dates: start: 19680101
  4. FOSAMAX PLUS D [Suspect]
     Indication: OSTEOPOROSIS
     Route: 048
     Dates: start: 20060309, end: 20080401
  5. CALCIUM (UNSPECIFIED) [Concomitant]
     Route: 048
     Dates: start: 19960101
  6. FOSAMAX [Suspect]
     Route: 048
     Dates: start: 20010629, end: 20060614
  7. FOSAMAX PLUS D [Suspect]
     Route: 048
     Dates: start: 20010629
  8. FOSAMAX PLUS D [Suspect]
     Indication: OSTEOPENIA
     Route: 048
     Dates: start: 20060309, end: 20080401
  9. FOSAMAX [Suspect]
     Indication: OSTEOPOROSIS
     Route: 048
     Dates: start: 19961106, end: 20010901
  10. FOSAMAX PLUS D [Suspect]
     Route: 048
     Dates: start: 20010629
  11. ALENDRONATE SODIUM [Suspect]
     Indication: OSTEOPOROSIS
     Route: 048
     Dates: start: 20080428, end: 20100301
  12. ESTROGENS (UNSPECIFIED) [Concomitant]
     Indication: HORMONE REPLACEMENT THERAPY
     Route: 048
     Dates: start: 19900101
  13. VITAMIN D (UNSPECIFIED) [Concomitant]
     Route: 048
     Dates: start: 19960101

REACTIONS (61)
  - FEMUR FRACTURE [None]
  - BASAL CELL CARCINOMA [None]
  - BACK DISORDER [None]
  - CONSTIPATION [None]
  - ARTERIOSCLEROSIS CORONARY ARTERY [None]
  - WEIGHT INCREASED [None]
  - DIZZINESS [None]
  - IRON DEFICIENCY ANAEMIA [None]
  - INCREASED TENDENCY TO BRUISE [None]
  - FALL [None]
  - CARDIAC DISORDER [None]
  - CATARACT [None]
  - CONTUSION [None]
  - UPPER RESPIRATORY TRACT INFECTION [None]
  - TOOTH DISORDER [None]
  - MUSCLE SPASMS [None]
  - HYPOTHYROIDISM [None]
  - BRONCHITIS [None]
  - COUGH [None]
  - TINNITUS [None]
  - PARAESTHESIA [None]
  - WEIGHT DECREASED [None]
  - HEADACHE [None]
  - LOW TURNOVER OSTEOPATHY [None]
  - HAEMORRHAGIC ANAEMIA [None]
  - HAND FRACTURE [None]
  - PAIN IN EXTREMITY [None]
  - OSTEOARTHRITIS [None]
  - HYPERLIPIDAEMIA [None]
  - DYSPEPSIA [None]
  - GAIT DISTURBANCE [None]
  - STRESS FRACTURE [None]
  - HIP FRACTURE [None]
  - CARPAL TUNNEL SYNDROME [None]
  - OROPHARYNGEAL PAIN [None]
  - PNEUMONIA [None]
  - VITAMIN D DEFICIENCY [None]
  - GOITRE [None]
  - FRACTURE DELAYED UNION [None]
  - APPENDIX DISORDER [None]
  - OVERDOSE [None]
  - CORONARY ARTERY DISEASE [None]
  - INTERVERTEBRAL DISC DEGENERATION [None]
  - GASTROOESOPHAGEAL REFLUX DISEASE [None]
  - THYROID NEOPLASM [None]
  - SYNCOPE [None]
  - MUSCULOSKELETAL PAIN [None]
  - JOINT DISLOCATION [None]
  - HAEMORRHOIDS [None]
  - GASTROENTERITIS [None]
  - ASTHMA [None]
  - DRUG ABUSE [None]
  - THYROID CYST [None]
  - MASS [None]
  - OSTEOPOROSIS [None]
  - UTERINE DISORDER [None]
  - SINUS DISORDER [None]
  - SINUS CONGESTION [None]
  - VENTRICULAR ARRHYTHMIA [None]
  - PALATAL OEDEMA [None]
  - HYPONATRAEMIA [None]
